FAERS Safety Report 4630852-1 (Version None)
Quarter: 2005Q2

REPORT INFORMATION
  Report Type: 
  Country: None (occurrence: None)
  Receive Date: 20050406
  Receipt Date: 20050322
  Transmission Date: 20051028
  Serious: Yes (Death)
  Sender: FDA-Public Use
  Company Number: 2005000259

PATIENT
  Age: 65 Year
  Sex: Female

DRUGS (4)
  1. TARCEVA [Suspect]
     Indication: NON-SMALL CELL LUNG CANCER
     Dosage: 150 MG (QD), ORAL
     Route: 048
     Dates: start: 20050101
  2. MARINOL [Concomitant]
  3. OXYCONTIN [Concomitant]
  4. MEGACE [Concomitant]

REACTIONS (4)
  - CARDIO-RESPIRATORY ARREST [None]
  - MALIGNANT NEOPLASM PROGRESSION [None]
  - NASOPHARYNGITIS [None]
  - NON-SMALL CELL LUNG CANCER [None]
